FAERS Safety Report 25173463 (Version 1)
Quarter: 2025Q2

REPORT INFORMATION
  Report Type: Spontaneous
  Country: JP (occurrence: JP)
  Receive Date: 20250408
  Receipt Date: 20250408
  Transmission Date: 20250717
  Serious: Yes (Other)
  Sender: OTSUKA
  Company Number: JP-MMM-Otsuka-SXUPMCWY

PATIENT
  Age: 11 Month
  Sex: Female

DRUGS (3)
  1. BUSULFAN [Suspect]
     Active Substance: BUSULFAN
     Indication: Bone marrow conditioning regimen
     Route: 065
  2. FLUDARABINE PHOSPHATE [Suspect]
     Active Substance: FLUDARABINE PHOSPHATE
     Indication: Bone marrow conditioning regimen
     Route: 065
  3. LAPINE T-LYMPHOCYTE IMMUNE GLOBULIN [Suspect]
     Active Substance: LAPINE T-LYMPHOCYTE IMMUNE GLOBULIN
     Indication: Bone marrow conditioning regimen
     Route: 065

REACTIONS (5)
  - Systemic lupus erythematosus [Recovering/Resolving]
  - Haemophagocytic lymphohistiocytosis [Recovered/Resolved]
  - Epstein-Barr virus associated lymphoproliferative disorder [Unknown]
  - Thrombocytopenia [Recovering/Resolving]
  - Epstein-Barr virus infection [Unknown]
